FAERS Safety Report 8273817-3 (Version None)
Quarter: 2012Q2

REPORT INFORMATION
  Report Type: 
  Country: None (occurrence: None)
  Receive Date: 20120411
  Receipt Date: 20120402
  Transmission Date: 20120825
  Serious: Yes (Hospitalization)
  Sender: FDA-Public Use
  Company Number: PHHY2012DE030138

PATIENT
  Age: 48 Year
  Sex: Female

DRUGS (3)
  1. CLOZAPINE [Suspect]
  2. OLANZAPINE [Suspect]
     Dosage: 10 MG, UNK
  3. HALOPERIDOL [Concomitant]
     Dosage: 5 MG, DAILY

REACTIONS (10)
  - COORDINATION ABNORMAL [None]
  - PARKINSONISM [None]
  - STEREOTYPY [None]
  - APATHY [None]
  - HYPOTHERMIA [None]
  - GAIT DISTURBANCE [None]
  - AKINESIA [None]
  - GENERAL PHYSICAL HEALTH DETERIORATION [None]
  - EPILEPSY [None]
  - POOR PERSONAL HYGIENE [None]
